FAERS Safety Report 16091659 (Version 1)
Quarter: 2019Q1

REPORT INFORMATION
  Report Type: Spontaneous
  Country: DE (occurrence: DE)
  Receive Date: 20190319
  Receipt Date: 20190319
  Transmission Date: 20190418
  Serious: Yes (Other)
  Sender: FDA-Public Use
  Company Number: DE-MYLANLABS-2019M1024182

PATIENT
  Sex: Male

DRUGS (3)
  1. LANTAREL [Suspect]
     Active Substance: METHOTREXATE SODIUM
     Indication: RHEUMATIC DISORDER
     Dosage: UNK
     Route: 048
  2. PIPAMPERON NEURAXPHARM [Suspect]
     Active Substance: PIPAMPERONE HYDROCHLORIDE
     Indication: DEPRESSION
     Dosage: 1 TABLET IN THE EVENING
     Route: 048
  3. OLANZAPINE. [Suspect]
     Active Substance: OLANZAPINE
     Indication: DEPRESSION
     Dosage: UNK
     Route: 048

REACTIONS (2)
  - Leukopenia [Unknown]
  - Off label use [Unknown]
